FAERS Safety Report 4657094-8 (Version None)
Quarter: 2005Q2

REPORT INFORMATION
  Report Type: 
  Country: None (occurrence: None)
  Receive Date: 20050506
  Receipt Date: 20050423
  Transmission Date: 20051028
  Serious: Yes (Other)
  Sender: FDA-Public Use
  Company Number: 2005064617

PATIENT
  Age: 67 Year
  Sex: Male
  Weight: 111.1313 kg

DRUGS (2)
  1. BEXTRA [Suspect]
     Indication: ARTHRITIS
     Dosage: ORAL
     Route: 048
     Dates: start: 20040801, end: 20050422
  2. CELEBREX [Suspect]
     Indication: ARTHRITIS
     Dates: start: 20040801

REACTIONS (4)
  - KNEE OPERATION [None]
  - OSTEONECROSIS [None]
  - SKIN DISORDER [None]
  - SURGICAL PROCEDURE REPEATED [None]
